FAERS Safety Report 8867674 (Version 1)
Quarter: 2012Q4

REPORT INFORMATION
  Report Type: 
  Country: US (occurrence: US)
  Receive Date: 20121025
  Receipt Date: 20121025
  Transmission Date: 20130627
  Serious: No
  Sender: FDA-Public Use
  Company Number: US-AMGEN-USASP2012017873

PATIENT
  Sex: Female

DRUGS (6)
  1. ENBREL [Suspect]
     Indication: PRODUCT USED FOR UNKNOWN INDICATION
     Dosage: 50 mg, qwk
     Route: 058
  2. ZINC [Concomitant]
     Dosage: 30 mg, UNK
  3. VITAMIN B2                         /00154901/ [Concomitant]
     Dosage: 25 mg, UNK
  4. LOSARTAN POTASSSIUM [Concomitant]
     Dosage: 25 mg, UNK
  5. MULTIVITAMIN                       /00831701/ [Concomitant]
  6. BENADRYL                           /00000402/ [Concomitant]
     Dosage: 25 mg, UNK

REACTIONS (3)
  - Injection site erythema [Unknown]
  - Injection site swelling [Unknown]
  - Injection site pruritus [Unknown]
